FAERS Safety Report 21722340 (Version 16)
Quarter: 2025Q2

REPORT INFORMATION
  Report Type: Spontaneous
  Country: US (occurrence: US)
  Receive Date: 20221213
  Receipt Date: 20250610
  Transmission Date: 20250716
  Serious: Yes (Hospitalization, Other)
  Sender: PFIZER
  Company Number: US-PFIZER INC-PV202200120421

PATIENT
  Age: 75 Year
  Sex: Female
  Weight: 76.2 kg

DRUGS (6)
  1. IBRANCE [Suspect]
     Active Substance: PALBOCICLIB
     Indication: Breast cancer female
     Route: 048
     Dates: start: 201909
  2. IBRANCE [Suspect]
     Active Substance: PALBOCICLIB
  3. IBRANCE [Suspect]
     Active Substance: PALBOCICLIB
  4. IBRANCE [Suspect]
     Active Substance: PALBOCICLIB
     Route: 048
  5. FASLODEX [Concomitant]
     Active Substance: FULVESTRANT
     Route: 030
     Dates: start: 20190717, end: 20231206
  6. FASLODEX [Concomitant]
     Active Substance: FULVESTRANT

REACTIONS (22)
  - Second primary malignancy [Recovered/Resolved]
  - Skin cancer [Recovered/Resolved]
  - Neoplasm [Not Recovered/Not Resolved]
  - Alopecia [Not Recovered/Not Resolved]
  - Malignant pleural effusion [Unknown]
  - Cataract [Unknown]
  - Glaucoma [Unknown]
  - Neuropathy peripheral [Unknown]
  - Breast cancer female [Unknown]
  - Malignant neoplasm progression [Unknown]
  - Metastases to lung [Unknown]
  - Fatigue [Not Recovered/Not Resolved]
  - Insomnia [Unknown]
  - Pain [Unknown]
  - Sleep disorder [Unknown]
  - Hair texture abnormal [Unknown]
  - Lymphoedema [Unknown]
  - Cyst [Unknown]
  - Astigmatism [Unknown]
  - COVID-19 [Unknown]
  - Off label use [Unknown]
  - Product use issue [Unknown]

NARRATIVE: CASE EVENT DATE: 20210601
